FAERS Safety Report 8913856 (Version 10)
Quarter: 2014Q1

REPORT INFORMATION
  Report Type: Report from Study
  Country: US (occurrence: US)
  Receive Date: 20121116
  Receipt Date: 20140304
  Transmission Date: 20141002
  Serious: Yes (Other)
  Sender: FDA-Public Use
  Company Number: US-BIOGENIDEC-2012BI053030

PATIENT
  Age: 43 Year
  Sex: Female
  Weight: 84 kg

DRUGS (4)
  1. TYSABRI [Suspect]
     Indication: MULTIPLE SCLEROSIS
     Route: 042
     Dates: start: 20120807, end: 20121102
  2. LEVOTHYROXINE [Concomitant]
     Indication: HYPOTHYROIDISM
  3. SERTRALINE [Concomitant]
     Indication: ANTIDEPRESSANT THERAPY
  4. ATORVASTATIN [Concomitant]
     Indication: HYPERLIPIDAEMIA

REACTIONS (1)
  - Melanoma recurrent [Recovered/Resolved]
